FAERS Safety Report 10066643 (Version 1)
Quarter: 2014Q2

REPORT INFORMATION
  Report Type: Spontaneous
  Country: US (occurrence: None)
  Receive Date: 20140401
  Receipt Date: 20140401
  Transmission Date: 20141212
  Serious: Yes (Other)
  Sender: FDA-Public Use
  Company Number: PHEH2013US004847

PATIENT
  Age: 76 Year
  Sex: Female

DRUGS (6)
  1. EXELON PATCH [Suspect]
     Route: 062
     Dates: start: 20130104
  2. ARICEPT [Suspect]
  3. RISPERIDONE [Concomitant]
  4. LIPITOR (ATORVASTATIN CALCIUM) [Concomitant]
  5. NEXIUM [Concomitant]
  6. BABY ASPIRIN (ACETYLSALICYLIC ACID) [Concomitant]

REACTIONS (7)
  - Transient ischaemic attack [None]
  - Hallucination [None]
  - Diarrhoea [None]
  - Drug ineffective [None]
  - Gait disturbance [None]
  - Disorientation [None]
  - Dysarthria [None]
